FAERS Safety Report 8393465-4 (Version None)
Quarter: 2012Q2

REPORT INFORMATION
  Report Type: 
  Country: None (occurrence: None)
  Receive Date: 20120529
  Receipt Date: 20120514
  Transmission Date: 20120825
  Serious: Yes (Other)
  Sender: FDA-Public Use
  Company Number: US-FRI-1000030490

PATIENT
  Age: 43 Year
  Sex: Male
  Weight: 269 kg

DRUGS (6)
  1. HYDROCHLOROTHIAZIDE [Concomitant]
  2. DILTIAZEM [Suspect]
  3. LOSARTAN POTASSIUM [Concomitant]
  4. PHENTERMINE [Suspect]
     Indication: WEIGHT DECREASED
  5. METFORMIN HCL [Concomitant]
  6. GLYBURIDE [Concomitant]

REACTIONS (1)
  - ATRIAL FIBRILLATION [None]
